FAERS Safety Report 10884282 (Version 1)
Quarter: 2015Q1

REPORT INFORMATION
  Report Type: Spontaneous
  Country: US (occurrence: None)
  Receive Date: 20150226
  Receipt Date: 20150226
  Transmission Date: 20150721
  Serious: No
  Sender: FDA-Public Use
  Company Number: None

PATIENT
  Age: 39 Year
  Sex: Female

DRUGS (14)
  1. MODAFINIL. [Concomitant]
     Active Substance: MODAFINIL
  2. CITALOPRAM [Concomitant]
     Active Substance: CITALOPRAM HYDROBROMIDE
  3. AMPYRA [Suspect]
     Active Substance: DALFAMPRIDINE
     Indication: MULTIPLE SCLEROSIS
     Route: 048
     Dates: start: 201406, end: 201410
  4. BACLOFEN. [Concomitant]
     Active Substance: BACLOFEN
  5. PREGABALIN. [Concomitant]
     Active Substance: PREGABALIN
  6. OXYBUTYNIN [Concomitant]
     Active Substance: OXYBUTYNIN
  7. TYSABRI [Concomitant]
     Active Substance: NATALIZUMAB
  8. KLOR-CON [Concomitant]
     Active Substance: POTASSIUM CHLORIDE
  9. VITAMIN D2 [Concomitant]
     Active Substance: ERGOCALCIFEROL
  10. TROSPIUM [Concomitant]
     Active Substance: TROSPIUM
  11. PHENYTOIN. [Concomitant]
     Active Substance: PHENYTOIN
  12. MIRABEGRON [Concomitant]
     Active Substance: MIRABEGRON
  13. INDAPAMIDE. [Concomitant]
     Active Substance: INDAPAMIDE
  14. FLONASE [Concomitant]
     Active Substance: FLUTICASONE PROPIONATE

REACTIONS (1)
  - Drug ineffective [None]

NARRATIVE: CASE EVENT DATE: 20141120
